FAERS Safety Report 21901982 (Version 1)
Quarter: 2023Q1

REPORT INFORMATION
  Report Type: Spontaneous
  Country: CA (occurrence: CA)
  Receive Date: 20230124
  Receipt Date: 20230124
  Transmission Date: 20230418
  Serious: Yes (Hospitalization, Other)
  Sender: FDA-Public Use
  Company Number: CA-BRISTOL-MYERS SQUIBB COMPANY-2023-010172

PATIENT
  Sex: Female
  Weight: 46.72 kg

DRUGS (10)
  1. ORENCIA [Suspect]
     Active Substance: ABATACEPT
     Indication: Rheumatoid arthritis
     Route: 042
  2. ASPIRIN [Concomitant]
     Active Substance: ASPIRIN
  3. DENOSUMAB [Concomitant]
     Active Substance: DENOSUMAB
     Route: 058
  4. ESOMEPRAZOLE [Concomitant]
     Active Substance: ESOMEPRAZOLE
  5. EZETIMIBE [Concomitant]
     Active Substance: EZETIMIBE
  6. FERROUS SULFATE [Concomitant]
     Active Substance: FERROUS SULFATE
  7. HYDROXYCHLOROQUINE [Concomitant]
     Active Substance: HYDROXYCHLOROQUINE
  8. METOPROLOL [Concomitant]
     Active Substance: METOPROLOL
  9. RAMIPRIL [Concomitant]
     Active Substance: RAMIPRIL
  10. ROSUVASTATIN [Concomitant]
     Active Substance: ROSUVASTATIN

REACTIONS (2)
  - Cerebrovascular accident [Recovering/Resolving]
  - Prescribed overdose [Unknown]
